FAERS Safety Report 5139644-0 (Version None)
Quarter: 2006Q4

REPORT INFORMATION
  Report Type: 
  Country: None (occurrence: None)
  Receive Date: 20061023
  Receipt Date: 20061017
  Transmission Date: 20070319
  Serious: Yes (Hospitalization)
  Sender: FDA-Public Use
  Company Number: B0442993A

PATIENT
  Age: 50 Year
  Sex: Female

DRUGS (4)
  1. LITHIUM SALT [Suspect]
     Indication: BIPOLAR DISORDER
     Dosage: UNK
  2. MIANSERIN HYDROCHLORIDE               (MIANSERIN HYDROCHLORIDE) [Suspect]
     Dosage: UNK
  3. BIPERIDEN HYDROCHLORIDE TAB [Suspect]
     Dosage: UNK
  4. ALPRAZOLAM [Suspect]
     Dosage: UNK

REACTIONS (4)
  - HAEMODIALYSIS [None]
  - MULTIPLE DRUG OVERDOSE INTENTIONAL [None]
  - SUICIDE ATTEMPT [None]
  - THERAPEUTIC AGENT TOXICITY [None]
